FAERS Safety Report 5204698-X (Version None)
Quarter: 2007Q1

REPORT INFORMATION
  Report Type: 
  Country: None (occurrence: None)
  Receive Date: 20070110
  Receipt Date: 20060619
  Transmission Date: 20070707
  Serious: Yes (Other)
  Sender: FDA-Public Use
  Company Number: US-BRISTOL-MYERS SQUIBB COMPANY-13416607

PATIENT
  Age: 45 Year
  Sex: Male
  Weight: 118 kg

DRUGS (10)
  1. ABILIFY [Suspect]
     Indication: BIPOLAR DISORDER
     Route: 048
  2. DILTIAZEM HCL [Concomitant]
  3. DIOVAN [Concomitant]
  4. HYDROCHLOROTHIAZIDE [Concomitant]
  5. STRATTERA [Concomitant]
  6. DEPAKOTE [Concomitant]
  7. ACTOS [Concomitant]
  8. LOVASTATIN [Concomitant]
  9. VITAMIN CAP [Concomitant]
  10. TYLENOL [Concomitant]

REACTIONS (9)
  - ANXIETY [None]
  - APATHY [None]
  - HOSTILITY [None]
  - INSOMNIA [None]
  - MOOD SWINGS [None]
  - MUSCULOSKELETAL STIFFNESS [None]
  - RASH PRURITIC [None]
  - SMOKER [None]
  - SUICIDAL IDEATION [None]
